FAERS Safety Report 5175651-X (Version None)
Quarter: 2006Q4

REPORT INFORMATION
  Report Type: 
  Country: None (occurrence: None)
  Receive Date: 20061215
  Receipt Date: 20060718
  Transmission Date: 20070319
  Serious: No
  Sender: FDA-Public Use
  Company Number: US-AMGEN-KDL186724

PATIENT
  Sex: Female
  Weight: 116.7 kg

DRUGS (7)
  1. ENBREL [Suspect]
     Indication: RHEUMATOID ARTHRITIS
     Route: 058
     Dates: start: 20060105
  2. METHOTREXATE [Suspect]
     Dates: start: 20060301
  3. SULFASALAZINE [Concomitant]
  4. IBUPROFEN [Concomitant]
  5. UNKNOWN [Concomitant]
  6. LUNESTA [Concomitant]
     Dates: start: 20060101
  7. FOLIC ACID [Concomitant]
     Dates: start: 20060320

REACTIONS (4)
  - COUGH [None]
  - PARANASAL SINUS HYPERSECRETION [None]
  - SINUS CONGESTION [None]
  - UPPER RESPIRATORY TRACT CONGESTION [None]
